FAERS Safety Report 10690037 (Version 6)
Quarter: 2015Q2

REPORT INFORMATION
  Report Type: Report from Study
  Country: FR (occurrence: FR)
  Receive Date: 20150105
  Receipt Date: 20150511
  Transmission Date: 20150821
  Serious: Yes (Other)
  Sender: FDA-Public Use
  Company Number: FR-JNJFOC-20140417162

PATIENT

DRUGS (6)
  1. XANAX [Concomitant]
     Active Substance: ALPRAZOLAM
     Indication: PRODUCT USED FOR UNKNOWN INDICATION
     Route: 065
  2. XEPLION [Suspect]
     Active Substance: PALIPERIDONE PALMITATE
     Indication: PRODUCT USED FOR UNKNOWN INDICATION
     Route: 030
     Dates: start: 2013
  3. LOXAPAC [Suspect]
     Active Substance: LOXAPINE SUCCINATE
     Indication: INSOMNIA
     Dosage: 50 MG EVENING AT LEAST, AND EVEN 75 MG TO 100 MG TO SLEEP.
     Route: 065
  4. KEPPRA [Concomitant]
     Active Substance: LEVETIRACETAM
     Indication: EPILEPSY
     Route: 065
  5. IMOVANE [Suspect]
     Active Substance: ZOPICLONE
     Indication: PRODUCT USED FOR UNKNOWN INDICATION
     Route: 065
  6. TERCIAN [Concomitant]
     Active Substance: CYAMEMAZINE
     Indication: PRODUCT USED FOR UNKNOWN INDICATION
     Route: 065

REACTIONS (11)
  - Intentional self-injury [Unknown]
  - Drug ineffective [Unknown]
  - Torticollis [Unknown]
  - Suicidal ideation [Unknown]
  - Petit mal epilepsy [Unknown]
  - Sleep disorder [Recovering/Resolving]
  - Hallucinations, mixed [Unknown]
  - Injection site pain [Recovered/Resolved]
  - Weight increased [Unknown]
  - Delusion [Unknown]
  - Fatigue [Unknown]
